FAERS Safety Report 5889530-3 (Version None)
Quarter: 2008Q3

REPORT INFORMATION
  Report Type: 
  Country: None (occurrence: None)
  Receive Date: 20080919
  Receipt Date: 20080909
  Transmission Date: 20090109
  Serious: Yes (Hospitalization)
  Sender: FDA-Public Use
  Company Number: IN-ELI_LILLY_AND_COMPANY-IN200808004206

PATIENT
  Sex: Female

DRUGS (2)
  1. GEMCITE [Suspect]
     Indication: NON-SMALL CELL LUNG CANCER
     Dosage: 1250 MG/M2, UNKNOWN
     Route: 042
  2. CARBOPLATIN [Concomitant]
     Indication: NON-SMALL CELL LUNG CANCER
     Dosage: AUC OF 5 MG/ML.MIN
     Route: 042

REACTIONS (1)
  - NEUTROPENIA [None]
